FAERS Safety Report 10257808 (Version 1)
Quarter: 2014Q2

REPORT INFORMATION
  Report Type: Spontaneous
  Country: IT (occurrence: None)
  Receive Date: 20140620
  Receipt Date: 20140620
  Transmission Date: 20141212
  Serious: Yes (Other)
  Sender: FDA-Public Use
  Company Number: 2014AP003399

PATIENT
  Age: 47 Year
  Sex: Female

DRUGS (2)
  1. FERRIPROX [Suspect]
     Indication: THALASSAEMIA BETA
     Route: 048
     Dates: start: 20130427, end: 20140302
  2. EUTIROX (LEVOTHYROXINE SODIUM) [Concomitant]

REACTIONS (1)
  - Paralysis [None]
